FAERS Safety Report 10769120 (Version 2)
Quarter: 2015Q1

REPORT INFORMATION
  Report Type: Spontaneous
  Country: SA (occurrence: SA)
  Receive Date: 20150206
  Receipt Date: 20150330
  Transmission Date: 20150721
  Serious: Yes (Hospitalization)
  Sender: FDA-Public Use
  Company Number: PHHY2015SA012261

PATIENT
  Age: 38 Year
  Sex: Female

DRUGS (2)
  1. GILENYA [Suspect]
     Active Substance: FINGOLIMOD HYDROCHLORIDE
     Indication: MULTIPLE SCLEROSIS
     Dosage: 0.5 MG, QD
     Route: 048
     Dates: start: 20150126, end: 20150128
  2. INTERFERON [Concomitant]
     Active Substance: INTERFERON
     Indication: RELAPSING-REMITTING MULTIPLE SCLEROSIS
     Route: 065
     Dates: start: 2012

REACTIONS (5)
  - Atrioventricular block first degree [Unknown]
  - Heart rate decreased [Unknown]
  - Palpitations [Unknown]
  - Nodal rhythm [Recovered/Resolved]
  - Electrocardiogram P wave abnormal [Recovered/Resolved]

NARRATIVE: CASE EVENT DATE: 20150126
